FAERS Safety Report 25910607 (Version 1)
Quarter: 2025Q4

REPORT INFORMATION
  Report Type: Spontaneous
  Country: JP (occurrence: JP)
  Receive Date: 20251013
  Receipt Date: 20251013
  Transmission Date: 20260117
  Serious: Yes (Death, Other)
  Sender: ZHEJIANG XIANJU PHARMACEUTICAL CO., LTD.
  Company Number: JP-Hisun Pharmaceuticals USA Inc.-000751

PATIENT
  Age: 21 Month
  Sex: Male

DRUGS (2)
  1. PREDNISOLONE [Suspect]
     Active Substance: PREDNISOLONE
     Indication: Nephrotic syndrome
  2. ENALAPRIL [Concomitant]
     Active Substance: ENALAPRIL
     Indication: Hypertensive heart disease
     Route: 048

REACTIONS (3)
  - Necrotising colitis [Fatal]
  - Drug resistance [Unknown]
  - Neonatal multi-organ failure [Fatal]
